FAERS Safety Report 8375181-8 (Version None)
Quarter: 2012Q2

REPORT INFORMATION
  Report Type: 
  Country: None (occurrence: None)
  Receive Date: 20120521
  Receipt Date: 20120517
  Transmission Date: 20120825
  Serious: Yes (Hospitalization, Other)
  Sender: FDA-Public Use
  Company Number: US-AMGEN-USASP2012031403

PATIENT
  Sex: Female

DRUGS (1)
  1. PROLIA [Suspect]
     Indication: OSTEOPOROSIS POSTMENOPAUSAL
     Dates: start: 20111206

REACTIONS (5)
  - CARDIAC DISORDER [None]
  - HERPES ZOSTER [None]
  - VERTIGO [None]
  - URINARY TRACT INFECTION [None]
  - INFLUENZA LIKE ILLNESS [None]
